FAERS Safety Report 7789562-4 (Version None)
Quarter: 2011Q3

REPORT INFORMATION
  Report Type: 
  Country: None (occurrence: None)
  Receive Date: 20110930
  Receipt Date: 20110922
  Transmission Date: 20111222
  Serious: Yes (Other)
  Sender: FDA-Public Use
  Company Number: BE-JNJFOC-20110910064

PATIENT
  Age: 38 Year
  Sex: Female

DRUGS (2)
  1. ISOTRETINOIN [Interacting]
     Indication: ACNE
     Dates: start: 20110705
  2. SIMPONI [Suspect]
     Indication: ANKYLOSING SPONDYLITIS
     Route: 058
     Dates: start: 20100615, end: 20110825

REACTIONS (8)
  - LIP SWELLING [None]
  - HYPOTENSION [None]
  - DRUG INTERACTION [None]
  - ACNE [None]
  - TACHYCARDIA [None]
  - OEDEMA PERIPHERAL [None]
  - LEUKOCYTOCLASTIC VASCULITIS [None]
  - EYELID OEDEMA [None]
